FAERS Safety Report 6793112-9 (Version None)
Quarter: 2010Q2

REPORT INFORMATION
  Report Type: 
  Country: None (occurrence: None)
  Receive Date: 20100624
  Receipt Date: 20090619
  Transmission Date: 20101027
  Serious: Yes (Other)
  Sender: FDA-Public Use
  Company Number: US-MYLANLABS-2009S1008633

PATIENT
  Age: 51 Year
  Sex: Female

DRUGS (6)
  1. CLOZAPINE [Suspect]
     Indication: SCHIZOPHRENIA
     Route: 048
     Dates: start: 20011025, end: 20090507
  2. BENZTROPINE MESYLATE [Concomitant]
     Route: 048
  3. SEROQUEL [Concomitant]
     Dosage: USES 100MG AND 400MG
     Route: 048
  4. FLUOXETINE HCL [Concomitant]
     Route: 048
  5. SIMVASTATIN [Concomitant]
     Route: 048
  6. DEPAKOTE [Concomitant]
     Dosage: USES 250MG AND 500MG
     Route: 048

REACTIONS (1)
  - GRANULOCYTOPENIA [None]
